FAERS Safety Report 20621207 (Version 1)
Quarter: 2022Q1

REPORT INFORMATION
  Report Type: Spontaneous
  Country: FR (occurrence: FR)
  Receive Date: 20220322
  Receipt Date: 20220322
  Transmission Date: 20220423
  Serious: Yes (Disabling, Other)
  Sender: FDA-Public Use
  Company Number: ae005FR22

PATIENT
  Age: 81 Year
  Sex: Female

DRUGS (1)
  1. POLIDOCANOL [Suspect]
     Active Substance: POLIDOCANOL
     Indication: Varicose vein operation
     Dates: start: 20210608, end: 20210608

REACTIONS (3)
  - Extravasation [Recovered/Resolved]
  - Skin necrosis [Not Recovered/Not Resolved]
  - Motor dysfunction [Not Recovered/Not Resolved]

NARRATIVE: CASE EVENT DATE: 20210608
